FAERS Safety Report 7166228-5 (Version None)
Quarter: 2010Q4

REPORT INFORMATION
  Report Type: 
  Country: None (occurrence: None)
  Receive Date: 20101216
  Receipt Date: 20101125
  Transmission Date: 20110411
  Serious: Yes (Death, Hospitalization)
  Sender: FDA-Public Use
  Company Number: JP-BAYER-200912346BYL

PATIENT
  Sex: Male
  Weight: 57 kg

DRUGS (27)
  1. NEXAVAR [Suspect]
     Dosage: 400 MG, BID
     Route: 048
     Dates: start: 20090629, end: 20090702
  2. NEXAVAR [Suspect]
     Dosage: 400 MG, QOD
     Route: 048
     Dates: start: 20090721, end: 20090807
  3. NEXAVAR [Suspect]
  4. TPN [Concomitant]
     Dosage: 200 ML (DAILY DOSE), , ORAL
     Route: 048
     Dates: start: 20090807, end: 20090828
  5. MEPTIN [Concomitant]
     Indication: ASTHMA PROPHYLAXIS
     Dosage: 50 A?G, QD
     Route: 048
     Dates: start: 20090807, end: 20090828
  6. MEPTIN [Concomitant]
  7. TAKEPRON [Concomitant]
     Dosage: 15 MG, QD
     Route: 048
     Dates: start: 20090821, end: 20090828
  8. TAKEPRON [Concomitant]
  9. AMINOLEBAN [Concomitant]
     Dosage: 500 ML (DAILY DOSE), , INTRAVENOUS
     Route: 042
     Dates: start: 20090828, end: 20090831
  10. WYSTAL [Concomitant]
     Dosage: 2 G
     Route: 042
     Dates: start: 20090828, end: 20090903
  11. FAMOSTAGINE [Concomitant]
     Dosage: 40 MG (DAILY DOSE), , INTRAVENOUS
     Route: 042
     Dates: start: 20090828, end: 20090903
  12. FAMOSTAGINE [Concomitant]
     Dosage: 40 MG, QD
     Route: 048
     Dates: start: 20090629, end: 20090821
  13. MORPHINE HYDROCHLORIDE [Concomitant]
     Dosage: 10 MG, QD
     Route: 042
     Dates: start: 20090909, end: 20090913
  14. URSO 250 [Concomitant]
     Dosage: 600 MG, QD
     Route: 048
     Dates: start: 20090622, end: 20090821
  15. JUZENTAIHOTO [Concomitant]
     Dosage: 7.5 G, QD
     Route: 048
     Dates: start: 20090622, end: 20090723
  16. LIVACT [Concomitant]
     Dosage: 3 DF (DAILY DOSE), , ORAL
     Route: 048
     Dates: start: 20090704, end: 20090821
  17. LASIX [Concomitant]
     Dosage: 20 MG, QD
     Route: 048
     Dates: start: 20090713, end: 20090821
  18. LASIX [Concomitant]
     Dosage: 20 MG, QD
     Route: 048
     Dates: start: 20090715, end: 20090718
  19. MACACY [Concomitant]
     Dosage: 50 MG, QD
     Route: 048
     Dates: start: 20090713, end: 20090821
  20. AMLODIN [Concomitant]
     Dosage: 2.5 MG, QD
     Route: 048
     Dates: end: 20090821
  21. TRICOR [Concomitant]
     Dosage: 67 MG, QD
     Route: 048
     Dates: end: 20090821
  22. CARDENALIN [Concomitant]
     Dosage: 1 MG, QD
     Route: 048
     Dates: end: 20090821
  23. SOLDACTONE [Concomitant]
     Dosage: 100 MG, QD
     Route: 042
     Dates: start: 20090715, end: 20090718
  24. ALBUMIN (HUMAN) [Concomitant]
     Dosage: 50 ML, QD
     Route: 042
     Dates: start: 20090715, end: 20090717
  25. UNCODEABLE ^UNKNOWN MANUFACTURER^ [Concomitant]
     Dosage: 200 ML (DAILY DOSE), , ORAL
     Route: 048
     Dates: start: 20090807, end: 20090828
  26. AMINOLEBAN [AMINO ACIDS NOS] [Concomitant]
     Dosage: 500 ML, QD
     Route: 042
     Dates: start: 20090828, end: 20090831
  27. FALKAMIN [Concomitant]
     Dosage: 3 DF, QD
     Route: 048
     Dates: start: 20090704, end: 20090821

REACTIONS (7)
  - ABDOMINAL PAIN [None]
  - ANAEMIA [None]
  - BLOOD LACTATE DEHYDROGENASE INCREASED [None]
  - FATIGUE [None]
  - LIVER CARCINOMA RUPTURED [None]
  - MALIGNANT NEOPLASM PROGRESSION [None]
  - PYREXIA [None]
